FAERS Safety Report 7010913-2 (Version None)
Quarter: 2010Q3

REPORT INFORMATION
  Report Type: 
  Country: None (occurrence: None)
  Receive Date: 20100923
  Receipt Date: 20100923
  Transmission Date: 20110219
  Serious: Yes (Hospitalization)
  Sender: FDA-Public Use
  Company Number: None

PATIENT
  Age: 70 Year
  Sex: Female
  Weight: 64.4108 kg

DRUGS (5)
  1. MELOXICAM [Suspect]
     Indication: ARTHRITIS
     Dosage: 1 TAB/DAY DAILY AM WITH WATER AFTER MEAL
     Dates: start: 20090603, end: 20100824
  2. TRIAMTERENE AND HYDROCHLOROTHIAZIDE [Concomitant]
  3. SIMVASTATIN [Concomitant]
  4. ALENDRONATE SODIUM [Concomitant]
  5. ASPIRIN [Concomitant]

REACTIONS (6)
  - ABDOMINAL PAIN UPPER [None]
  - COLD SWEAT [None]
  - DYSPEPSIA [None]
  - FAECES DISCOLOURED [None]
  - INFECTION [None]
  - LARGE INTESTINE PERFORATION [None]
